FAERS Safety Report 20514652 (Version 1)
Quarter: 2022Q1

REPORT INFORMATION
  Report Type: Spontaneous
  Country: US (occurrence: None)
  Receive Date: 20220224
  Receipt Date: 20220224
  Transmission Date: 20220423
  Serious: Yes (Death)
  Sender: FDA-Public Use
  Company Number: None

PATIENT
  Sex: Male

DRUGS (9)
  1. LETAIRIS [Suspect]
     Active Substance: AMBRISENTAN
     Indication: Pulmonary arterial hypertension
     Dosage: FREQUENCY : DAILY;?
     Route: 048
  2. WARFARIN SODIUM [Concomitant]
     Active Substance: WARFARIN SODIUM
  3. OXYCODONE AND ACETAMINOPH [Concomitant]
  4. SOTALOL [Concomitant]
     Active Substance: SOTALOL
  5. BUMETANIDE [Concomitant]
     Active Substance: BUMETANIDE
  6. MUCINEX [Concomitant]
     Active Substance: GUAIFENESIN
  7. ALBUTEROL [Concomitant]
     Active Substance: ALBUTEROL
  8. IBUPROFEN [Concomitant]
     Active Substance: IBUPROFEN
  9. OMEPRAZOLE [Concomitant]
     Active Substance: OMEPRAZOLE

REACTIONS (1)
  - Death [None]
